FAERS Safety Report 12294828 (Version 1)
Quarter: 2016Q2

REPORT INFORMATION
  Report Type: Spontaneous
  Country: US (occurrence: None)
  Receive Date: 20160421
  Receipt Date: 20160421
  Transmission Date: 20160815
  Serious: No
  Sender: FDA-Public Use
  Company Number: None

PATIENT
  Sex: Female

DRUGS (1)
  1. HUMALOG [Suspect]
     Active Substance: INSULIN LISPRO

REACTIONS (8)
  - Balance disorder [None]
  - Back injury [None]
  - Limb injury [None]
  - Glycosylated haemoglobin increased [None]
  - Gait disturbance [None]
  - Joint injury [None]
  - Fall [None]
  - Glycosylated haemoglobin decreased [None]
